FAERS Safety Report 15779227 (Version 2)
Quarter: 2019Q1

REPORT INFORMATION
  Report Type: Spontaneous
  Country: US (occurrence: US)
  Receive Date: 20190101
  Receipt Date: 20190121
  Transmission Date: 20190417
  Serious: No
  Sender: FDA-Public Use
  Company Number: US-PFIZER INC-2018535961

PATIENT
  Age: 43 Year
  Sex: Female

DRUGS (1)
  1. XELJANZ [Suspect]
     Active Substance: TOFACITINIB CITRATE
     Indication: PSORIASIS
     Dosage: 5 MG, TWICE A DAY (X60)
     Route: 048
     Dates: start: 20181205

REACTIONS (4)
  - Product use in unapproved indication [Unknown]
  - Paraesthesia [Unknown]
  - Oral herpes [Unknown]
  - Rash vesicular [Recovering/Resolving]

NARRATIVE: CASE EVENT DATE: 20181205
